FAERS Safety Report 17277750 (Version 1)
Quarter: 2020Q1

REPORT INFORMATION
  Report Type: Spontaneous
  Country: AU (occurrence: AU)
  Receive Date: 20200116
  Receipt Date: 20200116
  Transmission Date: 20200409
  Serious: Yes (Other)
  Sender: FDA-Public Use
  Company Number: AU-MYLANLABS-2020M1004274

PATIENT
  Age: 65 Year
  Sex: Male

DRUGS (2)
  1. PROZAC [Concomitant]
     Active Substance: FLUOXETINE HYDROCHLORIDE
     Dosage: 20 MILLIGRAM, QD
  2. GOPTEN [Suspect]
     Active Substance: TRANDOLAPRIL
     Indication: PRODUCT USED FOR UNKNOWN INDICATION
     Dosage: 2 DOSAGE FORM, BID
     Dates: start: 1980

REACTIONS (15)
  - Pharyngeal swelling [Unknown]
  - Arthralgia [Unknown]
  - Chills [Unknown]
  - Restlessness [Unknown]
  - Fear [Unknown]
  - Oropharyngeal discomfort [Unknown]
  - Dyspnoea [Unknown]
  - Anxiety [Unknown]
  - Pollakiuria [Unknown]
  - Feeling cold [Unknown]
  - Urine output decreased [Unknown]
  - Pain in extremity [Unknown]
  - Abdominal pain upper [Unknown]
  - Feeling abnormal [Unknown]
  - Peripheral coldness [Unknown]
